FAERS Safety Report 5962581-6 (Version None)
Quarter: 2008Q4

REPORT INFORMATION
  Report Type: 
  Country: None (occurrence: None)
  Receive Date: 20081121
  Receipt Date: 20081112
  Transmission Date: 20090506
  Serious: Yes (Other)
  Sender: FDA-Public Use
  Company Number: US-PFIZER INC-2008096081

PATIENT
  Sex: Male
  Weight: 49.9 kg

DRUGS (4)
  1. LIPITOR [Suspect]
     Indication: BLOOD CHOLESTEROL INCREASED
     Route: 048
     Dates: start: 19990101
  2. CELEBREX [Suspect]
  3. PREDNISONE TAB [Concomitant]
     Indication: GASTROINTESTINAL DISORDER
  4. ASACOL [Concomitant]
     Indication: GASTROINTESTINAL DISORDER

REACTIONS (16)
  - ARTHRALGIA [None]
  - ASTHENIA [None]
  - BLOOD CHOLESTEROL INCREASED [None]
  - BLOOD COUNT ABNORMAL [None]
  - BODY MASS INDEX DECREASED [None]
  - DRUG INEFFECTIVE [None]
  - FATIGUE [None]
  - ILL-DEFINED DISORDER [None]
  - LYME DISEASE [None]
  - MUSCLE ATROPHY [None]
  - MYALGIA [None]
  - PAIN [None]
  - PAIN IN EXTREMITY [None]
  - PAIN IN JAW [None]
  - VOMITING [None]
  - WEIGHT DECREASED [None]
